FAERS Safety Report 8815650 (Version 2)
Quarter: 2013Q1

REPORT INFORMATION
  Report Type: Report from Study
  Country: JP (occurrence: JP)
  Receive Date: 20120928
  Receipt Date: 20130205
  Transmission Date: 20140127
  Serious: Yes (Death)
  Sender: FDA-Public Use
  Company Number: JP-AMGEN-JPNCT2012061371

PATIENT
  Age: 85 Year
  Sex: Male
  Weight: 70 kg

DRUGS (11)
  1. DARBEPOETIN ALFA [Suspect]
     Indication: NEPHROGENIC ANAEMIA
     Dosage: 60 MUG, Q4WK
     Route: 058
     Dates: start: 20110510, end: 20110607
  2. DARBEPOETIN ALFA [Suspect]
     Dosage: 60 MUG, QD
     Route: 058
     Dates: start: 20110712, end: 20110712
  3. DARBEPOETIN ALFA [Suspect]
     Dosage: 60 MUG, Q4WK
     Route: 058
     Dates: start: 20110802, end: 20111025
  4. DIOVAN [Concomitant]
     Indication: NEPHROSCLEROSIS
     Dosage: UNK
     Route: 048
  5. LASIX [Concomitant]
     Indication: NEPHROSCLEROSIS
     Dosage: UNK
     Route: 048
  6. ADALAT CR [Concomitant]
     Indication: NEPHROSCLEROSIS
     Dosage: UNK
     Route: 048
  7. ZYLORIC [Concomitant]
     Dosage: UNK
     Route: 048
  8. PLETAAL [Concomitant]
     Dosage: UNK
     Route: 048
  9. SLOW-K [Concomitant]
     Dosage: UNK
     Route: 048
  10. EQUA [Concomitant]
     Dosage: UNK
     Route: 048
  11. GLIMICRON [Concomitant]
     Dosage: UNK

REACTIONS (3)
  - Sudden death [Fatal]
  - Hypokalaemia [Recovered/Resolved]
  - Oedema [Recovering/Resolving]
